FAERS Safety Report 15251148 (Version 1)
Quarter: 2018Q3

REPORT INFORMATION
  Report Type: Spontaneous
  Country: US (occurrence: US)
  Receive Date: 20180717
  Receipt Date: 20180717
  Transmission Date: 20181010
  Serious: Yes (Other)
  Sender: FDA-Public Use
  Company Number: None

PATIENT
  Age: 29 Year
  Sex: Female
  Weight: 72.85 kg

DRUGS (1)
  1. BUPRENORPHINE NALOXONE [Suspect]
     Active Substance: BUPRENORPHINE\NALOXONE
     Indication: DRUG DEPENDENCE
     Route: 060
     Dates: start: 20171208, end: 20171211

REACTIONS (4)
  - Nausea [None]
  - Dysphoria [None]
  - Palpitations [None]
  - Diarrhoea [None]

NARRATIVE: CASE EVENT DATE: 20171208
